FAERS Safety Report 6515406-4 (Version None)
Quarter: 2009Q4

REPORT INFORMATION
  Report Type: 
  Country: None (occurrence: None)
  Receive Date: 20091223
  Receipt Date: 20091214
  Transmission Date: 20100525
  Serious: Yes (Other)
  Sender: FDA-Public Use
  Company Number: JP-ROCHE-674750

PATIENT
  Sex: Female

DRUGS (8)
  1. VALGANCICLOVIR HCL [Suspect]
     Indication: CYTOMEGALOVIRUS INFECTION
     Dosage: DRUG: VALIXA TABLETS 450MG (VALGANCICLOVIR HYDROCHLORIDE), FREQUENCY: PER DAY
     Route: 048
     Dates: start: 20091101, end: 20091101
  2. VALGANCICLOVIR HCL [Suspect]
     Route: 048
     Dates: start: 20091105, end: 20091111
  3. VALGANCICLOVIR HCL [Suspect]
     Route: 048
     Dates: start: 20091112, end: 20091115
  4. VALGANCICLOVIR HCL [Suspect]
     Route: 048
     Dates: start: 20091116, end: 20091122
  5. PROGRAF [Suspect]
     Route: 048
     Dates: start: 20091017, end: 20091022
  6. PROGRAF [Suspect]
     Route: 048
     Dates: start: 20091023, end: 20091027
  7. PROGRAF [Suspect]
     Route: 048
     Dates: start: 20091028, end: 20091105
  8. PROGRAF [Suspect]
     Route: 048
     Dates: start: 20091106, end: 20091203

REACTIONS (1)
  - HYPONATRAEMIA [None]
